FAERS Safety Report 5292707-1 (Version None)
Quarter: 2007Q1

REPORT INFORMATION
  Report Type: 
  Country: None (occurrence: None)
  Receive Date: 20070116
  Receipt Date: 20060719
  Transmission Date: 20070707
  Serious: Yes (Other)
  Sender: FDA-Public Use
  Company Number: HQWYE161419JUL06

PATIENT
  Age: 83 Year
  Sex: Female

DRUGS (1)
  1. PREMPRO [Suspect]
     Dates: start: 19961001, end: 20020201

REACTIONS (1)
  - BREAST CANCER [None]
